FAERS Safety Report 9137933 (Version 1)
Quarter: 2013Q1

REPORT INFORMATION
  Report Type: Spontaneous
  Country: IT (occurrence: IT)
  Receive Date: 20130304
  Receipt Date: 20130304
  Transmission Date: 20140127
  Serious: Yes (Other)
  Sender: FDA-Public Use
  Company Number: IT-PFIZER INC-2013075795

PATIENT
  Age: 42 Year
  Sex: Female

DRUGS (5)
  1. XANAX [Suspect]
     Dosage: 20 ML, TOTAL DOSE
     Route: 048
     Dates: start: 20130123, end: 20130123
  2. MINIAS [Suspect]
     Dosage: 20 ML, TOTAL DOSE
     Route: 048
     Dates: start: 20130123, end: 20130123
  3. TOPAMAX [Suspect]
     Dosage: 30 DF, TOTAL DOSE
     Route: 048
     Dates: start: 20130123, end: 20130123
  4. PAROXETINE HYDROCHLORIDE [Concomitant]
     Dosage: 40 MG, UNK
     Route: 048
  5. EUTIROX [Concomitant]
     Dosage: 75 UG, UNK
     Route: 048

REACTIONS (2)
  - Drug abuse [Recovering/Resolving]
  - Suicide attempt [Recovering/Resolving]
